FAERS Safety Report 6464122-6 (Version None)
Quarter: 2009Q4

REPORT INFORMATION
  Report Type: 
  Country: None (occurrence: None)
  Receive Date: 20091201
  Receipt Date: 20091020
  Transmission Date: 20100525
  Serious: Yes (Other)
  Sender: FDA-Public Use
  Company Number: US-AMGEN-QUU367840

PATIENT
  Sex: Female
  Weight: 59 kg

DRUGS (10)
  1. ENBREL [Suspect]
     Indication: PSORIASIS
     Route: 058
     Dates: start: 20080826, end: 20090701
  2. INH [Concomitant]
     Dates: start: 20080310
  3. VITAMIN B6 [Concomitant]
     Dates: start: 20080310
  4. ASPIRIN [Concomitant]
  5. ASCORBIC ACID [Concomitant]
  6. MULTI-VITAMINS [Concomitant]
  7. CALCIUM WITH VITAMIN D [Concomitant]
  8. FISH OIL [Concomitant]
  9. FLAX SEED OIL [Concomitant]
  10. TYLENOL (CAPLET) [Concomitant]

REACTIONS (11)
  - ACTINIC KERATOSIS [None]
  - BURNING SENSATION [None]
  - CHRONIC LYMPHOCYTIC LEUKAEMIA [None]
  - DERMATITIS [None]
  - DRUG INEFFECTIVE [None]
  - HAEMATURIA [None]
  - HAEMORRHAGE [None]
  - LYMPHOMA [None]
  - NEUTROPENIA [None]
  - PSORIASIS [None]
  - SEBORRHOEIC KERATOSIS [None]
